FAERS Safety Report 12586727 (Version 2)
Quarter: 2016Q3

REPORT INFORMATION
  Report Type: Report from Study
  Country: ZA (occurrence: ZA)
  Receive Date: 20160725
  Receipt Date: 20160802
  Transmission Date: 20161109
  Serious: Yes (Other)
  Sender: FDA-Public Use
  Company Number: PHHY2015ZA088380

PATIENT
  Sex: Female

DRUGS (1)
  1. ACLASTA [Suspect]
     Active Substance: ZOLEDRONIC ACID
     Indication: OSTEOPOROSIS
     Dosage: 1 DF, Q12MO (5MG/100ML ANUALLY)
     Route: 065
     Dates: start: 201407

REACTIONS (4)
  - Nerve injury [Unknown]
  - Pain in extremity [Unknown]
  - Limb discomfort [Unknown]
  - Joint stiffness [Unknown]
